FAERS Safety Report 9496526 (Version 3)
Quarter: 2013Q4

REPORT INFORMATION
  Report Type: Report from Study
  Country: US (occurrence: US)
  Receive Date: 20130904
  Receipt Date: 20131112
  Transmission Date: 20140711
  Serious: Yes (Hospitalization, Other)
  Sender: FDA-Public Use
  Company Number: PHEH2013US018545

PATIENT
  Age: 6 Year
  Sex: Male
  Weight: 22.49 kg

DRUGS (7)
  1. TOBRAMYCIN [Suspect]
     Indication: CYSTIC FIBROSIS
     Dosage: 300 MG, BID
  2. CYPROHEPTADINE [Concomitant]
     Dosage: UNK UKN, UNK
  3. PULMOZYME [Concomitant]
     Dosage: UNK UKN, UNK
  4. HYPERSOL B [Concomitant]
     Dosage: UNK UKN, UNK
  5. PREVACID [Concomitant]
     Dosage: UNK UKN, UNK
  6. ALBUTEROL [Concomitant]
     Dosage: UNK UKN, UNK
  7. BACTRIM [Concomitant]
     Dosage: UNK UKN, UNK

REACTIONS (5)
  - Increased bronchial secretion [Unknown]
  - Dyspnoea [Unknown]
  - Oxygen saturation decreased [Unknown]
  - Lung disorder [Recovering/Resolving]
  - Drug ineffective [Unknown]
